FAERS Safety Report 6254315-5 (Version None)
Quarter: 2009Q3

REPORT INFORMATION
  Report Type: 
  Country: None (occurrence: None)
  Receive Date: 20090702
  Receipt Date: 20090624
  Transmission Date: 20100115
  Serious: Yes (Hospitalization, Other)
  Sender: FDA-Public Use
  Company Number: US-BIOGENIDEC-2009BI011881

PATIENT
  Age: 62 Year
  Sex: Female

DRUGS (2)
  1. AVONEX [Suspect]
     Indication: MULTIPLE SCLEROSIS
     Route: 030
     Dates: end: 20090101
  2. AVONEX [Suspect]
     Route: 030
     Dates: start: 19970101

REACTIONS (5)
  - ANXIETY [None]
  - CARDIAC HYPERTROPHY [None]
  - DEPRESSION [None]
  - SUICIDAL IDEATION [None]
  - SYNCOPE [None]
